FAERS Safety Report 7685333-8 (Version None)
Quarter: 2011Q3

REPORT INFORMATION
  Report Type: 
  Country: None (occurrence: None)
  Receive Date: 20110816
  Receipt Date: 20110808
  Transmission Date: 20111222
  Serious: Yes (Death, Hospitalization, Other)
  Sender: FDA-Public Use
  Company Number: US-BAYER-201037711NA

PATIENT
  Age: 53 Year
  Sex: Female
  Weight: 88.889 kg

DRUGS (26)
  1. NEXIUM [Concomitant]
     Indication: GASTROOESOPHAGEAL REFLUX DISEASE
     Dosage: UNK
     Dates: start: 20000101
  2. CALTRATE [CALCIUM CARBONATE] [Concomitant]
  3. VERAMYST [Concomitant]
  4. ZAROXOLYN [Concomitant]
  5. METOPROLOL TARTRATE [Concomitant]
  6. LIPITOR [Concomitant]
  7. METOLAZONE [Concomitant]
  8. PROTONIX [Concomitant]
  9. LEVOXYL [Concomitant]
  10. COZAAR [Concomitant]
  11. NASONEX [Concomitant]
  12. DARVOCET-N 50 [Concomitant]
  13. SOTALOL HCL [Concomitant]
  14. KLOR-CON [Concomitant]
     Dosage: UNK
     Dates: start: 20010101
  15. CALCIUM CARBONATE [Concomitant]
     Dosage: UNK
     Dates: start: 20010101
  16. NORVASC [Concomitant]
  17. PACERONE [Concomitant]
  18. YASMIN [Suspect]
     Indication: ACNE
     Dosage: UNK
     Dates: start: 20000101, end: 20010101
  19. DIGOXIN [Concomitant]
  20. CELEBREX [Concomitant]
  21. JANTOVEN [Concomitant]
  22. UNCODEABLE ^UNCLASSIFIABLE^ [Concomitant]
  23. ZYRTEC [Concomitant]
  24. LEVOTHYROXINE SODIUM [Concomitant]
  25. FUROSEMIDE [Concomitant]
  26. EFFEXOR [Concomitant]

REACTIONS (4)
  - PULMONARY EMBOLISM [None]
  - PAIN [None]
  - DYSPNOEA [None]
  - CARDIAC DISORDER [None]
